FAERS Safety Report 6439493-7 (Version None)
Quarter: 2009Q4

REPORT INFORMATION
  Report Type: 
  Country: None (occurrence: None)
  Receive Date: 20091113
  Receipt Date: 20091110
  Transmission Date: 20100525
  Serious: Yes (Congenital Anomaly)
  Sender: FDA-Public Use
  Company Number: A0681157A

PATIENT
  Sex: Male
  Weight: 2.8 kg

DRUGS (6)
  1. PAXIL [Suspect]
     Indication: DRUG USE FOR UNKNOWN INDICATION
     Dosage: 10MG PER DAY
     Dates: start: 19950101, end: 19990101
  2. VITAMIN TAB [Concomitant]
  3. SYNTHROID [Concomitant]
  4. AMOXICILLIN [Concomitant]
  5. SUDAFED 12 HOUR [Concomitant]
  6. VANCENASE [Concomitant]

REACTIONS (4)
  - CONGENITAL HIP DEFORMITY [None]
  - DRUG EXPOSURE DURING PREGNANCY [None]
  - LIMB MALFORMATION [None]
  - UNEQUAL LIMB LENGTH [None]
